FAERS Safety Report 23492697 (Version 1)
Quarter: 2024Q1

REPORT INFORMATION
  Report Type: Spontaneous
  Country: NO (occurrence: NO)
  Receive Date: 20240207
  Receipt Date: 20240207
  Transmission Date: 20240410
  Serious: Yes (Hospitalization, Other)
  Sender: FDA-Public Use
  Company Number: None

PATIENT

DRUGS (2)
  1. LAMICTAL [Suspect]
     Active Substance: LAMOTRIGINE
     Indication: Epilepsy
     Dosage: 25 MG, QOD;FOLLOWING THE RECOMMENDED DOSE ESCALATION REGIMEN, WHEN ALSO RECEIVING VALPROIC ACID.
     Route: 048
     Dates: start: 20231214, end: 20231229
  2. VALPROATE SODIUM [Concomitant]
     Active Substance: VALPROATE SODIUM
     Indication: Epilepsy
     Dosage: 300 MG, TID;MIXTURE, SOLUTION
     Route: 065

REACTIONS (8)
  - Systemic immune activation [Recovering/Resolving]
  - Non-pitting oedema [Recovering/Resolving]
  - Balance disorder [Recovering/Resolving]
  - Pyrexia [Recovering/Resolving]
  - Abdominal pain [Recovering/Resolving]
  - Noninfective conjunctivitis [Recovering/Resolving]
  - Hepatic function abnormal [Recovering/Resolving]
  - Erythema [Recovering/Resolving]
